FAERS Safety Report 22062004 (Version 2)
Quarter: 2023Q1

REPORT INFORMATION
  Report Type: Spontaneous
  Country: FR (occurrence: FR)
  Receive Date: 20230304
  Receipt Date: 20230307
  Transmission Date: 20230418
  Serious: Yes (Disabling)
  Sender: FDA-Public Use
  Company Number: None

PATIENT
  Age: 85 Year
  Sex: Male

DRUGS (2)
  1. CEFTAZIDIME [Suspect]
     Active Substance: CEFTAZIDIME
     Indication: Device related infection
     Dosage: UNK
     Route: 042
     Dates: start: 202107, end: 20210927
  2. LEVOFLOXACIN [Suspect]
     Active Substance: LEVOFLOXACIN
     Indication: Device related infection
     Dosage: UNK
     Route: 048
     Dates: start: 202107, end: 20211222

REACTIONS (1)
  - Skin hyperpigmentation [Recovering/Resolving]

NARRATIVE: CASE EVENT DATE: 20210701
